FAERS Safety Report 4755874-1 (Version None)
Quarter: 2005Q3

REPORT INFORMATION
  Report Type: 
  Country: None (occurrence: None)
  Receive Date: 20050830
  Receipt Date: 20050706
  Transmission Date: 20060218
  Serious: Yes (Hospitalization)
  Sender: FDA-Public Use
  Company Number: US-BRISTOL-MYERS SQUIBB COMPANY-13027701

PATIENT
  Age: 61 Year
  Sex: Male
  Weight: 110 kg

DRUGS (3)
  1. ERBITUX [Suspect]
     Indication: COLON CANCER METASTATIC
     Route: 042
     Dates: start: 20050531
  2. CPT-11 [Concomitant]
  3. PROCRIT [Concomitant]

REACTIONS (1)
  - HEADACHE [None]
